FAERS Safety Report 7624642-5 (Version None)
Quarter: 2011Q3

REPORT INFORMATION
  Report Type: 
  Country: None (occurrence: None)
  Receive Date: 20110720
  Receipt Date: 20110715
  Transmission Date: 20111222
  Serious: Yes (Hospitalization, Other)
  Sender: FDA-Public Use
  Company Number: NL-ALLERGAN-1109640US

PATIENT
  Age: 29 Year
  Sex: Male

DRUGS (1)
  1. BOTOX [Suspect]
     Indication: HYPERHIDROSIS

REACTIONS (3)
  - PALPITATIONS [None]
  - PAIN [None]
  - DRUG INEFFECTIVE [None]
